FAERS Safety Report 20773831 (Version 4)
Quarter: 2022Q2

REPORT INFORMATION
  Report Type: Spontaneous
  Country: AU (occurrence: AU)
  Receive Date: 20220502
  Receipt Date: 20220520
  Transmission Date: 20220720
  Serious: Yes (Other)
  Sender: FDA-Public Use
  Company Number: AU-KOREA IPSEN Pharma-2022-12018

PATIENT
  Sex: Female
  Weight: 50 kg

DRUGS (1)
  1. DYSPORT [Suspect]
     Active Substance: ABOBOTULINUMTOXINA
     Indication: Skin wrinkling
     Dosage: 20 IU DYPSORT (PROCERUS: 10 UNITS, CORRUGATOR: 10 UNITS)
     Route: 030
     Dates: start: 20220427, end: 20220427

REACTIONS (3)
  - Syncope [Recovered/Resolved]
  - Nausea [Recovering/Resolving]
  - Exposure during pregnancy [Unknown]

NARRATIVE: CASE EVENT DATE: 20220427
